FAERS Safety Report 8175224-0 (Version None)
Quarter: 2012Q1

REPORT INFORMATION
  Report Type: 
  Country: None (occurrence: None)
  Receive Date: 20120227
  Receipt Date: 20120213
  Transmission Date: 20120608
  Serious: Yes (Hospitalization)
  Sender: FDA-Public Use
  Company Number: DSM-2012-00206

PATIENT
  Age: 82 Year
  Sex: Female

DRUGS (6)
  1. IBUPROFEN (IBUPROFEN) (TABLET) [Concomitant]
  2. CHLORTHALIDONE [Suspect]
     Indication: HYPERTENSION
     Dosage: 50 MG (50 MG, 1 IN 1 D), ORAL
     Route: 048
     Dates: start: 20110801, end: 20110902
  3. OLMETEC PLUS (HYDROCHLOROTHIAZIDE, OLMESARTAN MEDOXOMIL) TABLET [Suspect]
     Indication: HYPERTENSION
     Dosage: 20/12.5 MG (1 IN 1 D), ORAL
     Route: 048
     Dates: start: 20110506, end: 20110902
  4. CAPTOPRIL [Concomitant]
  5. DUSPLATIN (MEBEVERINE) (TABLET) [Concomitant]
  6. CYMBALTA [Suspect]
     Indication: HYPERTENSION
     Dosage: 30 MG 930 MG, 1IN 1 D, ORAL
     Route: 048
     Dates: start: 20110829, end: 20110902

REACTIONS (8)
  - NAUSEA [None]
  - FALL [None]
  - BRADYPHRENIA [None]
  - DISORIENTATION [None]
  - VOMITING [None]
  - HYPONATRAEMIA [None]
  - HYPOKALAEMIA [None]
  - DRUG INTERACTION [None]
